FAERS Safety Report 16750234 (Version 3)
Quarter: 2019Q3

REPORT INFORMATION
  Report Type: Report from Study
  Country: US (occurrence: US)
  Receive Date: 20190828
  Receipt Date: 20190927
  Transmission Date: 20191005
  Serious: Yes (Hospitalization, Other)
  Sender: FDA-Public Use
  Company Number: US-GILEAD-2019-0425452

PATIENT
  Age: 75 Year
  Sex: Female

DRUGS (20)
  1. DILTIAZEM HCL EXTE-REL [Concomitant]
     Active Substance: DILTIAZEM HYDROCHLORIDE
  2. FUROSEMIDE. [Concomitant]
     Active Substance: FUROSEMIDE
  3. CALCIUM [Concomitant]
     Active Substance: CALCIUM
  4. LAXATIVE STOOL SOFTENER WITH SENNA [Concomitant]
  5. SOTALOL HCL [Concomitant]
     Active Substance: SOTALOL
  6. KLOR-CON [Concomitant]
     Active Substance: POTASSIUM CHLORIDE
  7. LOVENOX HP [Concomitant]
     Active Substance: ENOXAPARIN SODIUM
  8. WARFARIN SODIUM. [Concomitant]
     Active Substance: WARFARIN SODIUM
  9. ASPIRIN (E.C.) [Concomitant]
     Active Substance: ASPIRIN
  10. MAGNESIUM [Concomitant]
     Active Substance: MAGNESIUM
  11. LEVOTHYROXINE SODIUM. [Concomitant]
     Active Substance: LEVOTHYROXINE SODIUM
  12. ATORVASTATIN [Concomitant]
     Active Substance: ATORVASTATIN
  13. NYSTATIN. [Concomitant]
     Active Substance: NYSTATIN
  14. IRON [Concomitant]
     Active Substance: IRON
  15. VITAMIN B12 [Concomitant]
     Active Substance: CYANOCOBALAMIN
  16. OCUVITE COMPLETE [Concomitant]
  17. AMBRISENTAN [Suspect]
     Active Substance: AMBRISENTAN
     Indication: PULMONARY HYPERTENSION
     Dosage: 10 MG, QD
     Route: 065
  18. SILDENAFIL CITRATE. [Concomitant]
     Active Substance: SILDENAFIL CITRATE
  19. TYLENOL PM EXTRA STRENGTH [Concomitant]
     Active Substance: ACETAMINOPHEN\DIPHENHYDRAMINE HYDROCHLORIDE
  20. MULTIVITAMIN 6 [Concomitant]

REACTIONS (3)
  - Post procedural haemorrhage [Recovered/Resolved]
  - Nodule [Unknown]
  - Aortic valve replacement [Unknown]
